FAERS Safety Report 4914295-9 (Version None)
Quarter: 2006Q1

REPORT INFORMATION
  Report Type: 
  Country: None (occurrence: None)
  Receive Date: 20060213
  Receipt Date: 20060202
  Transmission Date: 20060701
  Serious: Yes (Hospitalization)
  Sender: FDA-Public Use
  Company Number: GXKR2006PL00681

PATIENT
  Age: 12 Year
  Sex: Female

DRUGS (1)
  1. AMOKSIKLAV [Suspect]
     Indication: UPPER RESPIRATORY TRACT INFECTION
     Dosage: ORAL
     Route: 048
     Dates: start: 20051101, end: 20051101

REACTIONS (6)
  - BILE DUCT OBSTRUCTION [None]
  - DYSPEPSIA [None]
  - GASTRITIS [None]
  - HEPATIC FAILURE [None]
  - JAUNDICE CHOLESTATIC [None]
  - WEIGHT DECREASED [None]
